FAERS Safety Report 8058037-X (Version None)
Quarter: 2012Q1

REPORT INFORMATION
  Report Type: 
  Country: None (occurrence: None)
  Receive Date: 20120117
  Receipt Date: 20120117
  Transmission Date: 20120608
  Serious: No
  Sender: FDA-Public Use
  Company Number: None

PATIENT
  Sex: Male

DRUGS (2)
  1. CITALOPRAM HYDROBROMIDE [Suspect]
     Indication: DEPRESSION
     Dosage: 20MG QD
     Dates: start: 20101001, end: 20120101
  2. CITALOPRAM HYDROBROMIDE [Suspect]
     Indication: OBSESSIVE-COMPULSIVE DISORDER
     Dosage: 20MG QD
     Dates: start: 20101001, end: 20120101

REACTIONS (1)
  - DRUG INEFFECTIVE [None]
